FAERS Safety Report 18261543 (Version 3)
Quarter: 2020Q4

REPORT INFORMATION
  Report Type: Report from Study
  Country: FR (occurrence: FR)
  Receive Date: 20200914
  Receipt Date: 20201104
  Transmission Date: 20210113
  Serious: Yes (Hospitalization)
  Sender: FDA-Public Use
  Company Number: FR-ROCHE-2673655

PATIENT
  Age: 72 Year
  Sex: Male
  Weight: 54 kg

DRUGS (8)
  1. DOCETAXEL. [Suspect]
     Active Substance: DOCETAXEL
     Indication: GASTRIC CANCER
     Dosage: LAST ADMINISTRATION BEFORE SAE OCCURRED: 25/AUG/2020
     Route: 042
     Dates: start: 20200811
  2. VANCOMYCIN [Concomitant]
     Active Substance: VANCOMYCIN
     Dates: start: 20200907, end: 20200921
  3. CASPOFUNGIN [Concomitant]
     Active Substance: CASPOFUNGIN
     Dates: start: 20200907, end: 20200921
  4. TRASTUZUMAB. [Suspect]
     Active Substance: TRASTUZUMAB
     Indication: GASTRIC CANCER
     Dosage: LOADING DOSE, LAST ADMINISTRATION BEFORE SAE OCCURRED: 25/AUG/2020
     Route: 042
     Dates: start: 20200811
  5. FLUOROURACIL. [Suspect]
     Active Substance: FLUOROURACIL
     Indication: GASTRIC CANCER
     Dosage: LAST ADMINISTRATION BEFORE SAE OCCURRED: 27/AUG/2020
     Route: 042
     Dates: start: 20200811
  6. LEUCOVORIN. [Suspect]
     Active Substance: LEUCOVORIN
     Indication: GASTRIC CANCER
     Dosage: LAST ADMINISTRATION BEFORE SAE OCCURRED: 25/AUG/2020
     Route: 042
     Dates: start: 20200811
  7. TAZOCILLINE [Concomitant]
     Active Substance: PIPERACILLIN SODIUM\TAZOBACTAM SODIUM
     Dates: start: 20200907, end: 20200921
  8. OXALIPLATIN. [Suspect]
     Active Substance: OXALIPLATIN
     Indication: GASTRIC CANCER
     Dosage: LAST ADMINISTRATION BEFORE SAE OCCURRED: 25/AUG/2020
     Route: 042
     Dates: start: 20200811

REACTIONS (1)
  - Tumour perforation [Recovered/Resolved]

NARRATIVE: CASE EVENT DATE: 20200907
